FAERS Safety Report 5581021-2 (Version None)
Quarter: 2008Q1

REPORT INFORMATION
  Report Type: 
  Country: None (occurrence: None)
  Receive Date: 20080103
  Receipt Date: 20071228
  Transmission Date: 20080703
  Serious: Yes (Other)
  Sender: FDA-Public Use
  Company Number: JP-MERCK-0712USA09320

PATIENT
  Age: 85 Year

DRUGS (7)
  1. PEPCID [Suspect]
     Route: 048
  2. STARSIS [Suspect]
     Route: 048
     Dates: end: 20071201
  3. AMLODIN [Concomitant]
     Route: 048
  4. MUCOSTA [Concomitant]
     Route: 048
  5. GLAKAY [Concomitant]
     Route: 048
  6. ROCALTROL [Concomitant]
     Route: 048
  7. FLOMOX [Concomitant]
     Route: 048

REACTIONS (1)
  - BLOOD POTASSIUM INCREASED [None]
